FAERS Safety Report 9341426 (Version 2)
Quarter: 2013Q3

REPORT INFORMATION
  Report Type: Spontaneous
  Country: FR (occurrence: FR)
  Receive Date: 20130611
  Receipt Date: 20130712
  Transmission Date: 20140515
  Serious: Yes (Hospitalization)
  Sender: FDA-Public Use
  Company Number: FR-JNJFOC-20130604067

PATIENT
  Age: 92 Year
  Sex: Female

DRUGS (7)
  1. CONTRAMAL [Suspect]
     Indication: PAIN
     Route: 048
     Dates: start: 20130418, end: 20130502
  2. DAFALGAN CODEINE [Concomitant]
     Indication: PRODUCT USED FOR UNKNOWN INDICATION
     Route: 048
  3. EUPRESSYL [Concomitant]
     Indication: PRODUCT USED FOR UNKNOWN INDICATION
     Route: 048
  4. CORTANCYL [Concomitant]
     Indication: PRODUCT USED FOR UNKNOWN INDICATION
     Route: 048
  5. OMEPRAZOLE [Concomitant]
     Indication: PRODUCT USED FOR UNKNOWN INDICATION
     Route: 048
  6. LASILIX [Concomitant]
     Indication: CARDIAC FAILURE
     Route: 048
     Dates: end: 20130502
  7. IRBESARTAN [Concomitant]
     Indication: PRODUCT USED FOR UNKNOWN INDICATION
     Route: 048

REACTIONS (4)
  - Abasia [Recovered/Resolved]
  - Hypotonia [Recovered/Resolved]
  - Coordination abnormal [Recovered/Resolved]
  - Nausea [Recovered/Resolved]
